FAERS Safety Report 10005551 (Version 1)
Quarter: 2014Q1

REPORT INFORMATION
  Report Type: Spontaneous
  Country: FR (occurrence: FR)
  Receive Date: 20140313
  Receipt Date: 20140313
  Transmission Date: 20141002
  Serious: Yes (Disabling)
  Sender: FDA-Public Use
  Company Number: FR-ROCHE-1363239

PATIENT
  Sex: Male

DRUGS (4)
  1. LUCENTIS [Suspect]
     Indication: AGE-RELATED MACULAR DEGENERATION
     Route: 050
     Dates: start: 20100701
  2. KARDEGIC [Concomitant]
  3. BISOPROLOL [Concomitant]
  4. RILUTEK [Concomitant]

REACTIONS (3)
  - Dysphagia [Not Recovered/Not Resolved]
  - Muscle contractions involuntary [Not Recovered/Not Resolved]
  - Dysarthria [Not Recovered/Not Resolved]
